FAERS Safety Report 22399646 (Version 1)
Quarter: 2023Q2

REPORT INFORMATION
  Report Type: Spontaneous
  Country: US (occurrence: US)
  Receive Date: 20230602
  Receipt Date: 20230602
  Transmission Date: 20230722
  Serious: Yes (Other)
  Sender: FDA-Public Use
  Company Number: US-MYLANLABS-2023M1057064

PATIENT
  Age: 27 Year
  Sex: Female

DRUGS (3)
  1. METHADONE [Suspect]
     Active Substance: METHADONE HYDROCHLORIDE
     Indication: Abdominal pain upper
     Dosage: 30 MILLIGRAM, BID, LATER, THE DOSE WAS INCREASED
     Route: 065
  2. HYDROMORPHONE [Suspect]
     Active Substance: HYDROMORPHONE
     Indication: Abdominal pain upper
     Dosage: 4 MILLIGRAM, Q3H, AS NEEDED
     Route: 065
  3. PANCRELIPASE [Suspect]
     Active Substance: PANCRELIPASE
     Indication: Abdominal pain upper
     Dosage: UNK
     Route: 065

REACTIONS (1)
  - Drug ineffective [Unknown]
